FAERS Safety Report 6340280-9 (Version None)
Quarter: 2009Q3

REPORT INFORMATION
  Report Type: 
  Country: None (occurrence: None)
  Receive Date: 20090902
  Receipt Date: 20090824
  Transmission Date: 20100115
  Serious: Yes (Hospitalization)
  Sender: FDA-Public Use
  Company Number: GP-09-08-0021

PATIENT
  Age: 63 Year
  Sex: Female

DRUGS (3)
  1. GABAPENTIN [Suspect]
     Indication: DIABETIC NEUROPATHY
     Dosage: 300 MG, T.I.D, ORAL
     Route: 048
  2. MULTIPLE DAY INSULIN INJECTIONS [Concomitant]
  3. IRBESARTAN [Concomitant]

REACTIONS (4)
  - ANURIA [None]
  - BLOOD POTASSIUM INCREASED [None]
  - HAEMODIALYSIS [None]
  - RHABDOMYOLYSIS [None]
